FAERS Safety Report 4480979-2 (Version None)
Quarter: 2004Q4

REPORT INFORMATION
  Report Type: 
  Country: None (occurrence: None)
  Receive Date: 20041019
  Receipt Date: 20041008
  Transmission Date: 20050328
  Serious: Yes (Other)
  Sender: FDA-Public Use
  Company Number: 2004076960

PATIENT
  Age: 42 Year
  Sex: Female
  Weight: 72.5755 kg

DRUGS (5)
  1. ARTHRITIS FORMULA BENGAY (MENTHOL, METHYL SALICYLATE) [Suspect]
     Indication: MYALGIA
     Dosage: QID, TOPICAL
     Route: 061
     Dates: start: 19840101
  2. INTERFERON BETA [Concomitant]
  3. VICODIN [Concomitant]
  4. IBUPROFEN [Concomitant]
  5. FENTANYL [Concomitant]

REACTIONS (1)
  - MULTIPLE SCLEROSIS [None]
